FAERS Safety Report 7761210-9 (Version None)
Quarter: 2011Q3

REPORT INFORMATION
  Report Type: 
  Country: None (occurrence: None)
  Receive Date: 20110920
  Receipt Date: 20110914
  Transmission Date: 20111222
  Serious: Yes (Life-Threatening)
  Sender: FDA-Public Use
  Company Number: PHHO2011BE15683

PATIENT
  Sex: Female
  Weight: 58 kg

DRUGS (6)
  1. BLINDED ALISKIREN [Suspect]
     Indication: CARDIOVASCULAR DISORDER
     Dosage: CODE NOT BROKEN
     Route: 048
     Dates: start: 20110804
  2. AMLODIPINE [Suspect]
     Dosage: 10 MG, UNK
  3. BLINDED NO TREATMENT RECEIVED [Suspect]
     Indication: CARDIOVASCULAR DISORDER
     Dosage: CODE NOT BROKEN
     Route: 048
     Dates: start: 20110804
  4. PRAZOSIN HCL [Suspect]
  5. BLINDED PLACEBO [Suspect]
     Indication: CARDIOVASCULAR DISORDER
     Dosage: CODE NOT BROKEN
     Route: 048
     Dates: start: 20110804
  6. AMLODIPINE [Suspect]
     Dosage: 5 MG, UNK

REACTIONS (1)
  - DEHYDRATION [None]
